FAERS Safety Report 8544142-8 (Version None)
Quarter: 2012Q3

REPORT INFORMATION
  Report Type: 
  Country: None (occurrence: None)
  Receive Date: 20120727
  Receipt Date: 20120720
  Transmission Date: 20120928
  Serious: Yes (Hospitalization)
  Sender: FDA-Public Use
  Company Number: AU-JNJFOC-20120704306

PATIENT
  Age: 62 Year
  Sex: Male

DRUGS (9)
  1. INFLIXIMAB, RECOMBINANT [Suspect]
     Route: 042
  2. IRON [Concomitant]
     Route: 065
  3. INFLIXIMAB, RECOMBINANT [Suspect]
     Route: 042
  4. FOLIC ACID [Concomitant]
     Route: 065
  5. INFLIXIMAB, RECOMBINANT [Suspect]
     Indication: CROHN'S DISEASE
     Route: 042
  6. ASPIRIN [Concomitant]
     Route: 065
  7. VITAMIN B-12 [Concomitant]
     Route: 065
  8. INFLIXIMAB, RECOMBINANT [Suspect]
     Route: 042
  9. AZATHIOPRINE [Concomitant]
     Route: 065

REACTIONS (1)
  - MANIA [None]
